FAERS Safety Report 21734759 (Version 1)
Quarter: 2022Q4

REPORT INFORMATION
  Report Type: Spontaneous
  Country: US (occurrence: US)
  Receive Date: 20221215
  Receipt Date: 20221215
  Transmission Date: 20230113
  Serious: No
  Sender: FDA-Public Use
  Company Number: US-AMGEN-USASP2022214471

PATIENT
  Age: 71 Year
  Sex: Male
  Weight: 90.703 kg

DRUGS (13)
  1. REPATHA [Suspect]
     Active Substance: EVOLOCUMAB
     Indication: Product used for unknown indication
     Dosage: UNK
     Route: 065
     Dates: start: 2020
  2. KORLYM [Suspect]
     Active Substance: MIFEPRISTONE
     Indication: Cushing^s syndrome
     Dosage: 300 MILLIGRAM, QD
     Route: 048
     Dates: start: 20220607
  3. KORLYM [Suspect]
     Active Substance: MIFEPRISTONE
     Dosage: 600 MILLIGRAM, QD
     Route: 065
     Dates: start: 202207
  4. KORLYM [Suspect]
     Active Substance: MIFEPRISTONE
     Dosage: 900 MILLIGRAM, QD
     Route: 065
     Dates: start: 2022
  5. ACTOS [Concomitant]
     Active Substance: PIOGLITAZONE HYDROCHLORIDE
  6. HYDROCHLOROTHIAZIDE [Concomitant]
     Active Substance: HYDROCHLOROTHIAZIDE
  7. NASACORT [Concomitant]
     Active Substance: TRIAMCINOLONE ACETONIDE
  8. NEBIVOLOL [Concomitant]
     Active Substance: NEBIVOLOL
  9. OZEMPIC [Concomitant]
     Active Substance: SEMAGLUTIDE
  10. PANTOPRAZOLE [Concomitant]
     Active Substance: PANTOPRAZOLE
  11. PRASUGREL [Concomitant]
     Active Substance: PRASUGREL
  12. SILDENAFIL [Concomitant]
     Active Substance: SILDENAFIL
  13. VASCEPA [Concomitant]
     Active Substance: ICOSAPENT ETHYL

REACTIONS (6)
  - Prostatic disorder [Unknown]
  - Walking disability [Unknown]
  - Pollakiuria [Unknown]
  - Thirst [Unknown]
  - Balance disorder [Unknown]
  - Condition aggravated [Unknown]

NARRATIVE: CASE EVENT DATE: 20200101
